FAERS Safety Report 15560882 (Version 2)
Quarter: 2019Q1

REPORT INFORMATION
  Report Type: Spontaneous
  Country: US (occurrence: US)
  Receive Date: 20181029
  Receipt Date: 20190320
  Transmission Date: 20190417
  Serious: No
  Sender: FDA-Public Use
  Company Number: US-PFIZER INC-2018433135

PATIENT
  Age: 77 Year
  Sex: Male
  Weight: 88 kg

DRUGS (5)
  1. LEFLUNOMIDE. [Suspect]
     Active Substance: LEFLUNOMIDE
     Indication: ARTHRITIS
     Dosage: 10 MG, 1X/DAY
     Route: 048
     Dates: end: 20180605
  2. XELJANZ XR [Suspect]
     Active Substance: TOFACITINIB CITRATE
     Indication: ARTHRITIS
     Dosage: 11 MG, DAILY
     Route: 048
     Dates: start: 201806
  3. HYDROCHLOROTHIAZIDE. [Concomitant]
     Active Substance: HYDROCHLOROTHIAZIDE
     Indication: CARDIAC DISORDER
     Dosage: UNK UNK, 1X/DAY (TAKES 1/2 TABLET A DAY BY MOUTH)
     Route: 048
     Dates: start: 2008
  4. XELJANZ XR [Suspect]
     Active Substance: TOFACITINIB CITRATE
     Indication: RHEUMATOID ARTHRITIS
     Dosage: 11 MG, 1X/DAY
     Route: 048
     Dates: start: 2018, end: 2018
  5. LOSARTAN. [Concomitant]
     Active Substance: LOSARTAN
     Indication: HYPERTENSION
     Dosage: 50 MG, 1X/DAY (FROM 6-8 YEARS, MAY BE 10 YEARS, PATIENT DID NOT REMEMBER)
     Route: 048
     Dates: start: 2008

REACTIONS (9)
  - Hair colour changes [Unknown]
  - Abdominal pain [Not Recovered/Not Resolved]
  - Inflammation [Unknown]
  - Ageusia [Recovered/Resolved]
  - Emotional distress [Unknown]
  - Diarrhoea [Recovering/Resolving]
  - Dyspnoea [Unknown]
  - Protein total increased [Unknown]
  - Swelling [Not Recovered/Not Resolved]

NARRATIVE: CASE EVENT DATE: 201811
